FAERS Safety Report 5403630-3 (Version None)
Quarter: 2007Q3

REPORT INFORMATION
  Report Type: 
  Country: None (occurrence: None)
  Receive Date: 20070802
  Receipt Date: 20070726
  Transmission Date: 20080115
  Serious: Yes (Other)
  Sender: FDA-Public Use
  Company Number: PHNU2007DE02670

PATIENT
  Sex: Female

DRUGS (5)
  1. ZOMETA [Suspect]
     Dosage: 4 MG, UNK
     Route: 042
     Dates: start: 20020901
  2. GLYCERYL TRINITRATE [Concomitant]
     Route: 065
  3. TRAMADOL HCL [Concomitant]
     Route: 065
  4. RAMIPRIL [Concomitant]
     Route: 065
  5. ASPIRIN [Concomitant]
     Route: 065

REACTIONS (10)
  - COMPUTERISED TOMOGRAM ABNORMAL [None]
  - FISTULA [None]
  - HISTOLOGY ABNORMAL [None]
  - IMPAIRED HEALING [None]
  - INFLAMMATION [None]
  - OSTECTOMY [None]
  - OSTEONECROSIS [None]
  - PURULENCE [None]
  - TOOTH EXTRACTION [None]
  - WOUND DEHISCENCE [None]
